FAERS Safety Report 20510167 (Version 1)
Quarter: 2022Q1

REPORT INFORMATION
  Report Type: Report from Study
  Country: GR (occurrence: GR)
  Receive Date: 20220224
  Receipt Date: 20220224
  Transmission Date: 20220423
  Serious: Yes (Hospitalization)
  Sender: FDA-Public Use
  Company Number: GR-ABBVIE-22K-066-4286524-00

PATIENT
  Age: 75 Year
  Sex: Female
  Weight: 75 kg

DRUGS (8)
  1. CARBIDOPA\LEVODOPA [Suspect]
     Active Substance: CARBIDOPA\LEVODOPA
     Indication: Parkinson^s disease
     Dosage: MORNING DOSE: 5.0ML; CONTINUOUS RATE: 1.4ML/H; EXTRA DOSE: 0.5ML
     Route: 050
     Dates: start: 20210623
  2. CARBIDOPA\LEVODOPA [Suspect]
     Active Substance: CARBIDOPA\LEVODOPA
     Dosage: MORNING DOSE: 5.0ML; CONTINUOUS RATE: 1.5ML/H; EXTRA DOSE: 0.5ML
     Route: 050
  3. FOLIC ACID [Concomitant]
     Active Substance: FOLIC ACID
     Indication: Anaemia
     Dosage: 1 X 1 (MONTH AFTER MONTH)
     Route: 048
  4. SEROPIN [Concomitant]
     Indication: Depression
     Route: 048
  5. SOFELIN [Concomitant]
     Indication: Depression
     Route: 048
  6. ALLOPURINOL [Concomitant]
     Active Substance: ALLOPURINOL
     Indication: Meningitis
     Route: 048
  7. MEMOMAX [Concomitant]
     Indication: Depression
     Route: 048
  8. XANAX [Concomitant]
     Active Substance: ALPRAZOLAM
     Indication: Depression
     Route: 048

REACTIONS (2)
  - Oxygen saturation decreased [Not Recovered/Not Resolved]
  - Coronavirus infection [Not Recovered/Not Resolved]
